FAERS Safety Report 5525738-4 (Version None)
Quarter: 2007Q4

REPORT INFORMATION
  Report Type: 
  Country: None (occurrence: None)
  Receive Date: 20071120
  Receipt Date: 20071107
  Transmission Date: 20080405
  Serious: Yes (Other)
  Sender: FDA-Public Use
  Company Number: 2007002086

PATIENT
  Sex: Male
  Weight: 3 kg

DRUGS (3)
  1. ERLOTINIB (ERLOTINIB HCL) (ERLOTINIB HCL   ) [Suspect]
     Indication: NON-SMALL CELL LUNG CANCER METASTATIC
     Dosage: TRANSPLACENTAL
     Route: 064
  2. ERLOTINIB (ERLOTINIB HCL) (ERLOTINIB HCL) [Suspect]
  3. BEVACIZUMAB [Suspect]
     Dosage: TRANSPLACENTAL
     Route: 064

REACTIONS (4)
  - CONGENITAL HAND MALFORMATION [None]
  - DRUG EXPOSURE DURING PREGNANCY [None]
  - LIMB REDUCTION DEFECT [None]
  - TRANSMISSION OF DRUG VIA SEMEN [None]
